FAERS Safety Report 20578455 (Version 1)
Quarter: 2022Q1

REPORT INFORMATION
  Report Type: Spontaneous
  Country: US (occurrence: US)
  Receive Date: 20220310
  Receipt Date: 20220310
  Transmission Date: 20220423
  Serious: No
  Sender: FDA-Public Use
  Company Number: US-PLXPHARMA-2021-PLX-00008

PATIENT
  Age: 67 Year
  Sex: Female
  Weight: 59.87 kg

DRUGS (4)
  1. VAZALORE [Suspect]
     Active Substance: ASPIRIN
     Indication: Cardiovascular event prophylaxis
     Route: 048
     Dates: start: 20211001, end: 20211001
  2. VAZALORE [Suspect]
     Active Substance: ASPIRIN
     Indication: COVID-19 treatment
  3. DEXAMETHASONE [Concomitant]
     Active Substance: DEXAMETHASONE
     Indication: COVID-19 treatment
     Route: 048
     Dates: start: 202109
  4. AZITHROMYCIN [Concomitant]
     Active Substance: AZITHROMYCIN
     Indication: COVID-19 treatment
     Route: 048
     Dates: start: 202109, end: 20211003

REACTIONS (2)
  - Dysphagia [Unknown]
  - Weight decreased [Unknown]

NARRATIVE: CASE EVENT DATE: 20211001
